FAERS Safety Report 8534756-3 (Version None)
Quarter: 2012Q3

REPORT INFORMATION
  Report Type: 
  Country: None (occurrence: None)
  Receive Date: 20120724
  Receipt Date: 20120717
  Transmission Date: 20120928
  Serious: Yes (Hospitalization)
  Sender: FDA-Public Use
  Company Number: US-BAXTER-2012BAX010547

PATIENT
  Sex: Female

DRUGS (3)
  1. DIANEAL [Suspect]
     Indication: PERITONEAL DIALYSIS
     Route: 033
     Dates: start: 20110930
  2. DIANEAL [Suspect]
     Route: 033
     Dates: start: 20110930
  3. DIANEAL [Suspect]
     Route: 033
     Dates: start: 20110930

REACTIONS (1)
  - CARDIAC DISORDER [None]
